FAERS Safety Report 13967953 (Version 1)
Quarter: 2017Q3

REPORT INFORMATION
  Report Type: Spontaneous
  Country: US (occurrence: US)
  Receive Date: 20170914
  Receipt Date: 20170914
  Transmission Date: 20171128
  Serious: No
  Sender: FDA-Public Use
  Company Number: US-009507513-1709USA000898

PATIENT
  Age: 17 Year

DRUGS (1)
  1. ENTEREG [Suspect]
     Active Substance: ALVIMOPAN
     Dosage: 12 MG, UNK
     Route: 048
     Dates: start: 2016

REACTIONS (2)
  - Drug administered to patient of inappropriate age [Unknown]
  - No adverse event [Unknown]

NARRATIVE: CASE EVENT DATE: 2016
